FAERS Safety Report 10246291 (Version 1)
Quarter: 2014Q2

REPORT INFORMATION
  Report Type: Spontaneous
  Country: US (occurrence: None)
  Receive Date: 20140617
  Receipt Date: 20140617
  Transmission Date: 20141212
  Serious: No
  Sender: FDA-Public Use
  Company Number: None

PATIENT
  Age: 48 Year
  Sex: Male
  Weight: 68.04 kg

DRUGS (1)
  1. NORTRIPTYLINE 25MG TARO [Suspect]
     Indication: DYSPEPSIA
     Dosage: 1 CAPSULE  ONCE DAILY  TAKEN BY MOUTH
     Route: 048
     Dates: start: 20140528, end: 20140603

REACTIONS (3)
  - Abdominal discomfort [None]
  - Drug ineffective [None]
  - Product quality issue [None]
